FAERS Safety Report 8165891-X (Version None)
Quarter: 2012Q1

REPORT INFORMATION
  Report Type: 
  Country: None (occurrence: None)
  Receive Date: 20120227
  Receipt Date: 20111106
  Transmission Date: 20120608
  Serious: Yes (Other)
  Sender: FDA-Public Use
  Company Number: US-MYLANLABS-2011S1022901

PATIENT
  Sex: Female

DRUGS (2)
  1. AMNESTEEM [Suspect]
     Indication: ACNE
     Route: 048
     Dates: start: 20060701, end: 20060701
  2. ACCUTANE [Suspect]
     Indication: ACNE
     Route: 048
     Dates: start: 20060601, end: 20061001

REACTIONS (1)
  - INFLAMMATORY BOWEL DISEASE [None]
